FAERS Safety Report 5614143-8 (Version None)
Quarter: 2008Q1

REPORT INFORMATION
  Report Type: 
  Country: None (occurrence: None)
  Receive Date: 20080205
  Receipt Date: 20080124
  Transmission Date: 20080703
  Serious: Yes (Other)
  Sender: FDA-Public Use
  Company Number: AU-PFIZER INC-2008007712

PATIENT
  Age: 47 Year
  Sex: Female

DRUGS (1)
  1. CABERGOLINE [Suspect]

REACTIONS (4)
  - DELUSION [None]
  - MAJOR DEPRESSION [None]
  - MARITAL PROBLEM [None]
  - PATHOLOGICAL GAMBLING [None]
